FAERS Safety Report 24130873 (Version 2)
Quarter: 2024Q3

REPORT INFORMATION
  Report Type: Spontaneous
  Country: DE (occurrence: DE)
  Receive Date: 20240724
  Receipt Date: 20240726
  Transmission Date: 20241017
  Serious: No
  Sender: SANOFI AVENTIS
  Company Number: DE-SANOFI-02144468

PATIENT
  Sex: Male

DRUGS (1)
  1. DUPIXENT [Suspect]
     Active Substance: DUPILUMAB
     Dosage: UNK

REACTIONS (1)
  - Latent tuberculosis [Unknown]
